FAERS Safety Report 18410382 (Version 1)
Quarter: 2020Q4

REPORT INFORMATION
  Report Type: Spontaneous
  Country: US (occurrence: US)
  Receive Date: 20201021
  Receipt Date: 20201021
  Transmission Date: 20210114
  Serious: Yes (Disabling)
  Sender: FDA-Public Use
  Company Number: None

PATIENT
  Age: 32 Year
  Sex: Female
  Weight: 67.5 kg

DRUGS (4)
  1. FLUTICASONE. [Concomitant]
     Active Substance: FLUTICASONE
  2. CERTERIZINE [Concomitant]
  3. SULFAMETHOXAZOLE / TRIMETHOPRIM DS [Suspect]
     Active Substance: SULFAMETHOXAZOLE\TRIMETHOPRIM
     Indication: URINARY TRACT INFECTION
     Route: 048
     Dates: start: 20201019, end: 20201019
  4. VITAMIN D [Concomitant]
     Active Substance: VITAMIN D NOS

REACTIONS (8)
  - Chills [None]
  - Photosensitivity reaction [None]
  - Dry mouth [None]
  - Thirst [None]
  - Back pain [None]
  - Dizziness [None]
  - Eye pain [None]
  - Arthralgia [None]

NARRATIVE: CASE EVENT DATE: 20201019
